FAERS Safety Report 17440517 (Version 1)
Quarter: 2020Q1

REPORT INFORMATION
  Report Type: Spontaneous
  Country: US (occurrence: US)
  Receive Date: 20200205
  Receipt Date: 20200205
  Transmission Date: 20200409
  Serious: Yes (Other)
  Sender: FDA-Public Use
  Company Number: None

PATIENT
  Age: 37 Year
  Sex: Female
  Weight: 83.91 kg

DRUGS (1)
  1. PREGABALIN 150MG [Suspect]
     Active Substance: PREGABALIN
     Indication: FIBROMYALGIA
     Route: 048
     Dates: start: 202001

REACTIONS (5)
  - Sedation [None]
  - Presyncope [None]
  - Dizziness [None]
  - Cognitive disorder [None]
  - Product substitution issue [None]

NARRATIVE: CASE EVENT DATE: 20200120
